FAERS Safety Report 5103438-2 (Version None)
Quarter: 2006Q3

REPORT INFORMATION
  Report Type: 
  Country: None (occurrence: None)
  Receive Date: 20060908
  Receipt Date: 20060830
  Transmission Date: 20061208
  Serious: Yes (Other)
  Sender: FDA-Public Use
  Company Number: CHPA2006US08742

PATIENT
  Sex: Female

DRUGS (2)
  1. EXCEDRIN (MIGRAINE) [Suspect]
     Indication: MIGRAINE
     Dosage: 2 DF, QD, ORAL
     Route: 048
  2. ANTIMIGRAINE PREPARATIONS (NO INDREDIENTS/SUBSTANCES) [Concomitant]

REACTIONS (1)
  - RECTAL HAEMORRHAGE [None]
